FAERS Safety Report 18322130 (Version 4)
Quarter: 2020Q4

REPORT INFORMATION
  Report Type: Report from Study
  Country: US (occurrence: US)
  Receive Date: 20200928
  Receipt Date: 20201013
  Transmission Date: 20210113
  Serious: Yes (Life-Threatening, Hospitalization, Other)
  Sender: FDA-Public Use
  Company Number: US-PFIZER INC-2020371591

PATIENT
  Age: 53 Year
  Sex: Male
  Weight: 62.7 kg

DRUGS (3)
  1. LEVOPHED [Suspect]
     Active Substance: NOREPINEPHRINE BITARTRATE
     Indication: HYPOTENSION
     Dosage: UNK (AT 02:18 + 02:21)
     Dates: start: 20200906, end: 20200906
  2. FENTANYL CITRATE. [Suspect]
     Active Substance: FENTANYL CITRATE
     Dosage: UNK, AS NEEDED (25-200 MCG/HR IV CONTINUOUS WITH BOLUS PRN)
     Route: 042
     Dates: start: 20200904
  3. BLINDED THERAPY [Suspect]
     Active Substance: INVESTIGATIONAL PRODUCT
     Indication: COVID-19
     Dosage: UNK
     Dates: start: 20200904

REACTIONS (5)
  - Hypoxia [Recovered/Resolved]
  - Ileus [Recovered/Resolved]
  - Bradycardia [Recovered/Resolved]
  - Hypotension [Recovered/Resolved]
  - Intestinal perforation [Recovered/Resolved]

NARRATIVE: CASE EVENT DATE: 20200906
